FAERS Safety Report 4903438-9 (Version None)
Quarter: 2006Q1

REPORT INFORMATION
  Report Type: 
  Country: None (occurrence: None)
  Receive Date: 20060206
  Receipt Date: 20060206
  Transmission Date: 20060701
  Serious: Yes (Hospitalization)
  Sender: FDA-Public Use
  Company Number: None

PATIENT
  Age: 81 Year
  Sex: Female
  Weight: 42 kg

DRUGS (1)
  1. LOVASTATIN [Suspect]
     Dosage: 80 MG QDAY AT BEDTIME PO
     Route: 048

REACTIONS (3)
  - ASTHENIA [None]
  - ELECTROLYTE IMBALANCE [None]
  - RHABDOMYOLYSIS [None]
